FAERS Safety Report 17554466 (Version 1)
Quarter: 2020Q1

REPORT INFORMATION
  Report Type: Report from Study
  Country: None (occurrence: US)
  Receive Date: 20200318
  Receipt Date: 20200318
  Transmission Date: 20200409
  Serious: Yes (Other)
  Sender: FDA-Public Use
  Company Number: US-ABBVIE-20K-163-3325315-00

PATIENT
  Age: 76 Year
  Sex: Male

DRUGS (1)
  1. VENCLEXTA [Suspect]
     Active Substance: VENETOCLAX
     Indication: ACUTE MYELOID LEUKAEMIA
     Dosage: BY MOUTH
     Route: 048
     Dates: start: 20200310

REACTIONS (5)
  - Decreased activity [Unknown]
  - Transfusion [Unknown]
  - Pruritus [Unknown]
  - Dizziness [Unknown]
  - Platelet transfusion [Unknown]

NARRATIVE: CASE EVENT DATE: 202003
